FAERS Safety Report 9770112 (Version 2)
Quarter: 2013Q4

REPORT INFORMATION
  Report Type: Spontaneous
  Country: US (occurrence: US)
  Receive Date: 20131218
  Receipt Date: 20131218
  Transmission Date: 20140711
  Serious: No
  Sender: FDA-Public Use
  Company Number: US-VERTEX PHARMACEUTICALS INC-AE-2011-000742

PATIENT
  Sex: Female
  Weight: 84.91 kg

DRUGS (2)
  1. INCIVEK [Suspect]
     Indication: HEPATITIS C
     Dates: start: 20110729
  2. NORVASC [Concomitant]
     Indication: HYPERTENSION
     Dates: start: 2006

REACTIONS (4)
  - Drug administration error [Recovered/Resolved]
  - Oedema peripheral [Not Recovered/Not Resolved]
  - Rash macular [Not Recovered/Not Resolved]
  - Anorectal discomfort [Not Recovered/Not Resolved]
